FAERS Safety Report 5608955-4 (Version None)
Quarter: 2008Q1

REPORT INFORMATION
  Report Type: 
  Country: None (occurrence: None)
  Receive Date: 20080129
  Receipt Date: 20080129
  Transmission Date: 20080703
  Serious: Yes (Other)
  Sender: FDA-Public Use
  Company Number: None

PATIENT
  Sex: Female
  Weight: 112.4921 kg

DRUGS (15)
  1. LIPITOR [Suspect]
     Indication: HYPERLIPIDAEMIA
     Dosage: 20 MG ONE AT BEDTIME PO
     Route: 048
     Dates: start: 20010101, end: 20080121
  2. MAXZIDE [Concomitant]
  3. SYNTHROID [Concomitant]
  4. DIOVAN [Concomitant]
  5. NORVASC [Concomitant]
  6. XANAX [Concomitant]
  7. AMBIEN [Concomitant]
  8. VITAMINS [Concomitant]
  9. MINERAL TAB [Concomitant]
  10. ANTIBIOTICS [Concomitant]
  11. ALBUTEROL [Concomitant]
  12. FLONASE [Concomitant]
  13. FLOVENT [Concomitant]
  14. ESTRASE [Concomitant]
  15. NEURONTIN [Concomitant]

REACTIONS (20)
  - ALLODYNIA [None]
  - ASTHMA [None]
  - CONDITION AGGRAVATED [None]
  - DRUG INEFFECTIVE [None]
  - DYSAESTHESIA [None]
  - EXERCISE TOLERANCE DECREASED [None]
  - FATIGUE [None]
  - HYPERSENSITIVITY [None]
  - HYPOAESTHESIA [None]
  - ILL-DEFINED DISORDER [None]
  - MYALGIA [None]
  - NEUROPATHY PERIPHERAL [None]
  - NO THERAPEUTIC RESPONSE [None]
  - ORAL PAIN [None]
  - PAIN [None]
  - SCIATICA [None]
  - SEROTONIN SYNDROME [None]
  - STIFF-MAN SYNDROME [None]
  - STOMATITIS [None]
  - SYSTEMIC LUPUS ERYTHEMATOSUS [None]
